FAERS Safety Report 23285320 (Version 1)
Quarter: 2023Q4

REPORT INFORMATION
  Report Type: Spontaneous
  Country: JP (occurrence: None)
  Receive Date: 20231211
  Receipt Date: 20231211
  Transmission Date: 20240110
  Serious: Yes (Death, Other)
  Sender: FDA-Public Use
  Company Number: 2023A278788

PATIENT
  Age: 72 Year
  Sex: Male
  Weight: 56 kg

DRUGS (4)
  1. IMFINZI [Suspect]
     Active Substance: DURVALUMAB
     Indication: Small cell lung cancer
     Route: 041
     Dates: start: 20230914, end: 20230914
  2. CISPLATIN [Suspect]
     Active Substance: CISPLATIN
     Indication: Small cell lung cancer
     Route: 041
     Dates: start: 20230914, end: 20230914
  3. ETOPOSIDE [Suspect]
     Active Substance: ETOPOSIDE
     Indication: Small cell lung cancer
     Dosage: ON DAYS 1, 2, AND 3 OF EACH CYCLE160.0MG UNKNOWN
     Route: 041
     Dates: start: 20230914, end: 20230916
  4. PEGFILGRASTIM [Concomitant]
     Active Substance: PEGFILGRASTIM
     Indication: Prophylaxis
     Dosage: DOSE UNKNOWN

REACTIONS (4)
  - Febrile neutropenia [Fatal]
  - Pneumonia bacterial [Fatal]
  - Bacteraemia [Fatal]
  - Septic shock [Fatal]

NARRATIVE: CASE EVENT DATE: 20230925
